FAERS Safety Report 18376046 (Version 1)
Quarter: 2020Q4

REPORT INFORMATION
  Report Type: Spontaneous
  Country: US (occurrence: US)
  Receive Date: 20201009
  Receipt Date: 20201009
  Transmission Date: 20210114
  Serious: No
  Sender: FDA-Public Use
  Company Number: None

PATIENT
  Sex: Female

DRUGS (6)
  1. MORPHINE SUL [Concomitant]
     Active Substance: MORPHINE SULFATE
  2. QUETIAPINE. [Concomitant]
     Active Substance: QUETIAPINE
  3. OXYCODONE [Concomitant]
     Active Substance: OXYCODONE
  4. CAPECITABINE 500MG TAB [Suspect]
     Active Substance: CAPECITABINE
     Indication: BREAST CANCER FEMALE
     Dosage: 3 TABS (1500MG) BID PO 2 WKS ON - 1 WK OFF?
     Route: 048
     Dates: start: 20200616
  5. CLONAZEPAM. [Concomitant]
     Active Substance: CLONAZEPAM
  6. GABAPENTIN. [Concomitant]
     Active Substance: GABAPENTIN

REACTIONS (3)
  - Decreased appetite [None]
  - Contusion [None]
  - Fatigue [None]
